FAERS Safety Report 5428506-7 (Version None)
Quarter: 2007Q3

REPORT INFORMATION
  Report Type: 
  Country: None (occurrence: None)
  Receive Date: 20070731
  Receipt Date: 20070427
  Transmission Date: 20080115
  Serious: No
  Sender: FDA-Public Use
  Company Number: US200704006605

PATIENT
  Age: 60 Year
  Sex: Female

DRUGS (4)
  1. BYETTA [Suspect]
     Dosage: 5 UG, SUBCUTANEOUS  10 UG, SUBCUTANEOUS   5 UG, SUBCUTANEOUS   10 UG, SUBCUTANEOUS
     Route: 058
     Dates: start: 20061201, end: 20061201
  2. BYETTA [Suspect]
     Dosage: 5 UG, SUBCUTANEOUS  10 UG, SUBCUTANEOUS   5 UG, SUBCUTANEOUS   10 UG, SUBCUTANEOUS
     Route: 058
     Dates: start: 20070201, end: 20070201
  3. BYETTA [Suspect]
     Dosage: 5 UG, SUBCUTANEOUS  10 UG, SUBCUTANEOUS   5 UG, SUBCUTANEOUS   10 UG, SUBCUTANEOUS
     Route: 058
     Dates: start: 20070301, end: 20070301
  4. BYETTA [Suspect]
     Dosage: 5 UG, SUBCUTANEOUS  10 UG, SUBCUTANEOUS   5 UG, SUBCUTANEOUS   10 UG, SUBCUTANEOUS
     Route: 058
     Dates: start: 20070401

REACTIONS (5)
  - DIARRHOEA [None]
  - NAUSEA [None]
  - VIRAL INFECTION [None]
  - VOMITING [None]
  - WEIGHT DECREASED [None]
